FAERS Safety Report 23884017 (Version 1)
Quarter: 2024Q2

REPORT INFORMATION
  Report Type: Spontaneous
  Country: US (occurrence: None)
  Receive Date: 20240521
  Receipt Date: 20240521
  Transmission Date: 20240716
  Serious: Yes (Hospitalization)
  Sender: FDA-Public Use
  Company Number: None

PATIENT
  Age: 10 Year
  Sex: Male
  Weight: 38.25 kg

DRUGS (2)
  1. CEFDINIR [Suspect]
     Active Substance: CEFDINIR
  2. Gasx [Concomitant]

REACTIONS (4)
  - Chest pain [None]
  - Arthralgia [None]
  - Crying [None]
  - Abdominal pain upper [None]

NARRATIVE: CASE EVENT DATE: 20240514
